FAERS Safety Report 4374081-8 (Version None)
Quarter: 2004Q2

REPORT INFORMATION
  Report Type: 
  Country: None (occurrence: None)
  Receive Date: 20040602
  Receipt Date: 20040127
  Transmission Date: 20050107
  Serious: Yes (Other)
  Sender: FDA-Public Use
  Company Number: 1519

PATIENT
  Age: 38 Year
  Sex: Female

DRUGS (14)
  1. AVINZA [Suspect]
     Indication: NECK PAIN
     Dosage: 30 MG QD PO
     Route: 048
     Dates: start: 20030630, end: 20031120
  2. AVINZA [Suspect]
     Indication: SPINAL OSTEOARTHRITIS
     Dosage: 30 MG QD PO
     Route: 048
     Dates: start: 20030630, end: 20031120
  3. AVINZA [Suspect]
     Indication: NECK PAIN
     Dosage: 120 MG QD PO
     Route: 048
     Dates: start: 20031121, end: 20031122
  4. AVINZA [Suspect]
     Indication: SPINAL OSTEOARTHRITIS
     Dosage: 120 MG QD PO
     Route: 048
     Dates: start: 20031121, end: 20031122
  5. ALPRAZOLAM [Concomitant]
  6. ARNICA MONTANA [Concomitant]
  7. BACTERIAL LACTO BACILLUS [Concomitant]
  8. CLONAZEPAM [Concomitant]
  9. DIVALPROEX SODIUM [Concomitant]
  10. ESOMEPRAZOLE MAGNESIUM [Concomitant]
  11. FISH OIL [Concomitant]
  12. FLUOXETINE HYDROCHLORIDE [Concomitant]
  13. LIQUID VITAMIN B [Concomitant]
  14. UNDA NUMBERS [Concomitant]

REACTIONS (1)
  - DRUG DEPENDENCE [None]
